FAERS Safety Report 9381651 (Version 1)
Quarter: 2013Q3

REPORT INFORMATION
  Report Type: Spontaneous
  Country: ES (occurrence: ES)
  Receive Date: 20130703
  Receipt Date: 20130703
  Transmission Date: 20140515
  Serious: Yes (Other)
  Sender: FDA-Public Use
  Company Number: ES-JNJFOC-20130700843

PATIENT
  Sex: 0

DRUGS (3)
  1. DOXORUBICIN HYDROCHLORIDE [Suspect]
     Indication: BREAST CANCER STAGE III
     Route: 042
  2. CYCLOPHOSPHAMIDE [Suspect]
     Indication: BREAST CANCER STAGE III
     Route: 065
  3. PACLITAXEL [Suspect]
     Indication: BREAST CANCER STAGE III
     Route: 065

REACTIONS (11)
  - Cardiotoxicity [Unknown]
  - Diarrhoea [Unknown]
  - Rash [Unknown]
  - Lung disorder [Unknown]
  - Neurotoxicity [Unknown]
  - Alopecia [Unknown]
  - Oedema [Unknown]
  - Neutropenia [Unknown]
  - Stomatitis [Unknown]
  - Skin reaction [Unknown]
  - Palmar-plantar erythrodysaesthesia syndrome [Unknown]
